FAERS Safety Report 21886254 (Version 4)
Quarter: 2023Q1

REPORT INFORMATION
  Report Type: Report from Study
  Country: DK (occurrence: None)
  Receive Date: 20230119
  Receipt Date: 20230217
  Transmission Date: 20230417
  Serious: Yes (Death, Hospitalization)
  Sender: FDA-Public Use
  Company Number: DK-ROCHE-3250131

PATIENT
  Age: 74 Year
  Sex: Female
  Weight: 62.3 kg

DRUGS (16)
  1. GLOFITAMAB [Suspect]
     Active Substance: GLOFITAMAB
     Indication: Marginal zone lymphoma
     Dosage: START DATE OF MOST RECENT DOSE OF STUDY DRUG PRIOR TO AE/SAE: 06-DEC-2022 2:00 PM TO 5:59 PM?DOSE LA
     Route: 042
     Dates: start: 20221115
  2. ATEZOLIZUMAB [Suspect]
     Active Substance: ATEZOLIZUMAB
     Indication: Marginal zone lymphoma
     Dosage: START DATE OF MOST RECENT DOSE (1200 MG) OF STUDY DRUG PRIOR TO AE/SAE: 06-DEC-2022, 11:23 AM TO 12:
     Route: 041
     Dates: start: 20221206
  3. OBINUTUZUMAB [Suspect]
     Active Substance: OBINUTUZUMAB
     Indication: Marginal zone lymphoma
     Dosage: START DATE OF MOST RECENT DOSE (1000 MG) OF STUDY DRUG PRIOR TO AE/SAE: 08-NOV-2022, 11:44 AM TO 4:2
     Route: 042
     Dates: start: 20221108
  4. TOCILIZUMAB [Suspect]
     Active Substance: TOCILIZUMAB
     Indication: Marginal zone lymphoma
     Dosage: START DATE OF MOST RECENT DOSE (480 MG) OF STUDY DRUG PRIOR TO AE/SAE: 16-NOV-2022, 9:45 AM TO 11:00
     Route: 042
     Dates: start: 20221116
  5. ZIRCONIUM ZR-89-DESFERRIOXAMINE-IAB22M2C [Suspect]
     Active Substance: ZIRCONIUM ZR-89-DESFERRIOXAMINE-IAB22M2C
     Indication: Marginal zone lymphoma
     Dosage: START DATE OF MOST RECENT DOSE OF STUDY DRUG PRIOR TO AE/SAE: 17-NOV-2022, 11:25 AM TO 11:41 AM?TOTA
     Route: 042
     Dates: start: 20221102
  6. DEXAMETHASONE [Concomitant]
     Active Substance: DEXAMETHASONE
     Route: 042
     Dates: start: 20221122, end: 20221122
  7. DEXAMETHASONE [Concomitant]
     Active Substance: DEXAMETHASONE
     Route: 042
     Dates: start: 20221206, end: 20221206
  8. DEXAMETHASONE [Concomitant]
     Active Substance: DEXAMETHASONE
     Dates: start: 20221230
  9. CETIRIZINE [Concomitant]
     Active Substance: CETIRIZINE HYDROCHLORIDE
     Route: 048
     Dates: start: 20221206, end: 20221206
  10. CETIRIZINE [Concomitant]
     Active Substance: CETIRIZINE HYDROCHLORIDE
     Route: 048
     Dates: start: 20221122, end: 20221122
  11. CITALOPRAM [Concomitant]
     Active Substance: CITALOPRAM HYDROBROMIDE
     Indication: Depression
     Dates: start: 20130108
  12. OMEPRAZOLE [Concomitant]
     Active Substance: OMEPRAZOLE
     Indication: Gastrooesophageal reflux disease
     Dates: start: 20190108
  13. ALLOPURINOL [Concomitant]
     Active Substance: ALLOPURINOL
     Indication: Prophylaxis
     Dates: start: 20221108
  14. FLUCONAZOLE [Concomitant]
     Active Substance: FLUCONAZOLE
     Indication: Oral candidiasis
     Dates: start: 20221226
  15. FUSIDIC ACID [Concomitant]
     Active Substance: FUSIDIC ACID
     Dates: start: 20221226, end: 20221229
  16. CIPROFLOXACIN [Concomitant]
     Active Substance: CIPROFLOXACIN
     Dates: start: 20221229

REACTIONS (2)
  - Cardiac failure [Fatal]
  - Pneumonia [Recovered/Resolved]

NARRATIVE: CASE EVENT DATE: 20221219
